FAERS Safety Report 8341967-9 (Version None)
Quarter: 2012Q2

REPORT INFORMATION
  Report Type: 
  Country: None (occurrence: None)
  Receive Date: 20120503
  Receipt Date: 20120417
  Transmission Date: 20120825
  Serious: Yes (Other)
  Sender: FDA-Public Use
  Company Number: JPI-P-015173

PATIENT
  Age: 63 Year
  Sex: Female
  Weight: 58.0604 kg

DRUGS (6)
  1. 3 NASAL SPRAYS [Concomitant]
  2. MULTIPLE UNSPECIFIED MEDICATIONS [Concomitant]
  3. TAMOXIFEN CITRATE [Suspect]
     Indication: BREAST CANCER
     Dates: start: 20120408
  4. 3 ASTHMA INHALERS [Concomitant]
  5. XYREM [Suspect]
     Indication: CATAPLEXY
     Dosage: 9 GM (4.5 GM, 2 IN 1 D), ORAL, 7.7 GM (3.85 GM, 2 IN 1 D), ORAL, 7.5 GM (3.75 GM, 2 IN 1 D), ORAL
     Route: 048
     Dates: start: 20090401
  6. XYREM [Suspect]
     Indication: CATAPLEXY
     Dosage: 9 GM (4.5 GM, 2 IN 1 D), ORAL, 7.7 GM (3.85 GM, 2 IN 1 D), ORAL, 7.5 GM (3.75 GM, 2 IN 1 D), ORAL
     Route: 048
     Dates: start: 20120408

REACTIONS (31)
  - DIZZINESS [None]
  - SOCIAL FEAR [None]
  - INCONTINENCE [None]
  - BREAST CANCER FEMALE [None]
  - HYPERHIDROSIS [None]
  - VOMITING [None]
  - MOUTH ULCERATION [None]
  - BLOOD PRESSURE SYSTOLIC INCREASED [None]
  - ASTHMA [None]
  - PROCEDURAL PAIN [None]
  - LIMB INJURY [None]
  - SUICIDAL IDEATION [None]
  - WEIGHT DECREASED [None]
  - ANXIETY [None]
  - NAUSEA [None]
  - FALL [None]
  - DEPRESSION [None]
  - CRYING [None]
  - RHINORRHOEA [None]
  - PAIN [None]
  - AKATHISIA [None]
  - SLEEP PARALYSIS [None]
  - HEADACHE [None]
  - RETCHING [None]
  - POOR QUALITY SLEEP [None]
  - TERMINAL INSOMNIA [None]
  - THINKING ABNORMAL [None]
  - DYSPNOEA [None]
  - ABASIA [None]
  - DISORIENTATION [None]
  - HALLUCINATION [None]
